FAERS Safety Report 5488286-6 (Version None)
Quarter: 2007Q4

REPORT INFORMATION
  Report Type: 
  Country: None (occurrence: None)
  Receive Date: 20071017
  Receipt Date: 20071009
  Transmission Date: 20080405
  Serious: Yes (Hospitalization)
  Sender: FDA-Public Use
  Company Number: US-ROCHE-524102

PATIENT
  Sex: Male

DRUGS (1)
  1. INVIRASE [Suspect]
     Route: 065
     Dates: start: 19970101

REACTIONS (1)
  - UNEVALUABLE EVENT [None]
